FAERS Safety Report 18125508 (Version 1)
Quarter: 2020Q3

REPORT INFORMATION
  Report Type: Spontaneous
  Country: US (occurrence: US)
  Receive Date: 20200807
  Receipt Date: 20200807
  Transmission Date: 20201103
  Serious: No
  Sender: FDA-Public Use
  Company Number: US-ROCHE-2435477

PATIENT
  Sex: Female

DRUGS (11)
  1. KADCYLA [Suspect]
     Active Substance: ADO-TRASTUZUMAB EMTANSINE
     Indication: BREAST CANCER FEMALE
     Dosage: NEVER FILLED
     Route: 065
  2. PROCHLORPERAZINE MALEATE. [Concomitant]
     Active Substance: PROCHLORPERAZINE MALEATE
  3. PERJETA [Suspect]
     Active Substance: PERTUZUMAB
     Indication: BREAST CANCER FEMALE
     Dosage: NEVER FILLED
     Route: 065
  4. HERCEPTIN [Suspect]
     Active Substance: TRASTUZUMAB
     Indication: BREAST CANCER FEMALE
     Dosage: NEVER FILLED
     Route: 065
  5. FLUOCINOLONE ACETONIDE. [Concomitant]
     Active Substance: FLUOCINOLONE ACETONIDE
  6. NYSTATIN. [Concomitant]
     Active Substance: NYSTATIN
  7. OXYCODONE AND ACETAMINOPHEN [Concomitant]
     Active Substance: ACETAMINOPHEN\OXYCODONE HYDROCHLORIDE
  8. DIPHENOXYLATE/ATROPINE [Concomitant]
     Active Substance: ATROPINE\DIPHENOXYLATE
  9. CALCIPOTRIENE. [Concomitant]
     Active Substance: CALCIPOTRIENE
  10. DOXEPIN HCL [Concomitant]
     Active Substance: DOXEPIN HYDROCHLORIDE
  11. SIMVASTATIN. [Concomitant]
     Active Substance: SIMVASTATIN

REACTIONS (2)
  - Gingival pain [Unknown]
  - Onychoclasis [Unknown]
